FAERS Safety Report 21686975 (Version 1)
Quarter: 2022Q4

REPORT INFORMATION
  Report Type: Spontaneous
  Country: SA (occurrence: SA)
  Receive Date: 20221206
  Receipt Date: 20221206
  Transmission Date: 20230112
  Serious: Yes (Death, Hospitalization, Other)
  Sender: FDA-Public Use
  Company Number: SA-STERISCIENCE B.V.-2022-ST-000127

PATIENT
  Age: 48 Year
  Sex: Female

DRUGS (8)
  1. MEROPENEM [Suspect]
     Active Substance: MEROPENEM
     Indication: Pseudomonal sepsis
     Dosage: 1 GRAM, Q8H (EVERY 8H)
     Route: 042
     Dates: start: 202104, end: 202104
  2. MEROPENEM [Suspect]
     Active Substance: MEROPENEM
     Indication: Febrile neutropenia
  3. FLUCONAZOLE [Suspect]
     Active Substance: FLUCONAZOLE
     Indication: Antifungal prophylaxis
     Dosage: 800 MILLIGRAM (LOADING DOSE)
     Route: 042
     Dates: start: 202104
  4. FLUCONAZOLE [Suspect]
     Active Substance: FLUCONAZOLE
     Indication: Febrile neutropenia
     Dosage: 400 MILLIGRAM PER DAY, FOR 16 DAYS
     Route: 042
     Dates: start: 202104
  5. DOCETAXEL [Suspect]
     Active Substance: DOCETAXEL
     Indication: Breast cancer
     Dosage: UNK, FIRST CYCLE
     Route: 065
  6. CASPOFUNGIN [Suspect]
     Active Substance: CASPOFUNGIN
     Indication: Antifungal prophylaxis
     Dosage: 700 MILLIGRAM (LOADING DOSE)
     Route: 042
     Dates: start: 20210427
  7. CASPOFUNGIN [Suspect]
     Active Substance: CASPOFUNGIN
     Dosage: 50 MILLIGRAM, QD (EVERY 24H)
     Route: 042
     Dates: start: 202104
  8. FILGRASTIM [Concomitant]
     Active Substance: FILGRASTIM
     Indication: Febrile neutropenia
     Dosage: 300?G, DAILY FOR 21 DAYS
     Route: 042

REACTIONS (2)
  - Protothecosis [Fatal]
  - Pneumonia [Unknown]

NARRATIVE: CASE EVENT DATE: 20210430
